FAERS Safety Report 14266649 (Version 1)
Quarter: 2017Q4

REPORT INFORMATION
  Report Type: Spontaneous
  Country: TR (occurrence: TR)
  Receive Date: 20171211
  Receipt Date: 20171211
  Transmission Date: 20180321
  Serious: Yes (Congenital Anomaly)
  Sender: FDA-Public Use
  Company Number: TR-UNICHEM PHARMACEUTICALS (USA) INC-UCM201711-000293

PATIENT
  Age: 34 Week
  Sex: Female
  Weight: 1.65 kg

DRUGS (4)
  1. FORMOTEROL  FUMARATE  DIHYDRATE [Suspect]
     Active Substance: FORMOTEROL FUMARATE DIHYDRATE
     Indication: ASTHMA
  2. MONTELUKAST [Suspect]
     Active Substance: MONTELUKAST SODIUM
     Indication: ASTHMA
  3. BECLOMETHASONE DIPROPIONATE [Suspect]
     Active Substance: BECLOMETHASONE DIPROPIONATE
     Indication: ASTHMA
  4. DESLORATADINE. [Suspect]
     Active Substance: DESLORATADINE
     Indication: ASTHMA

REACTIONS (9)
  - Adrenogenital syndrome [Unknown]
  - Duodenal atresia [Unknown]
  - Aplasia cutis congenita [Unknown]
  - Dermatitis bullous [Unknown]
  - Micrognathia [Unknown]
  - Ear malformation [Unknown]
  - Disorder of sex development [Unknown]
  - Genitalia external ambiguous [Unknown]
  - Foetal exposure during pregnancy [Unknown]
